FAERS Safety Report 22280840 (Version 1)
Quarter: 2023Q2

REPORT INFORMATION
  Report Type: Report from Study
  Country: CA (occurrence: CA)
  Receive Date: 20230503
  Receipt Date: 20230503
  Transmission Date: 20230721
  Serious: Yes (Other)
  Sender: FDA-Public Use
  Company Number: CA-ABBVIE-4749593

PATIENT
  Sex: Male

DRUGS (1)
  1. HUMIRA [Suspect]
     Active Substance: ADALIMUMAB
     Indication: Psoriasis
     Route: 058
     Dates: start: 20100124

REACTIONS (4)
  - Arterial occlusive disease [Unknown]
  - Impaired healing [Unknown]
  - Upper respiratory tract infection [Unknown]
  - Increased tendency to bruise [Unknown]
